FAERS Safety Report 19395067 (Version 1)
Quarter: 2021Q2

REPORT INFORMATION
  Report Type: Spontaneous
  Country: US (occurrence: US)
  Receive Date: 20210609
  Receipt Date: 20210609
  Transmission Date: 20210717
  Serious: No
  Sender: FDA-Public Use
  Company Number: US-ALLERGAN-2050415US

PATIENT
  Age: 90 Year
  Sex: Female

DRUGS (3)
  1. BLOOD PRESSURE MEDICATION [Concomitant]
     Active Substance: UNSPECIFIED INGREDIENT
     Indication: BLOOD PRESSURE MEASUREMENT
     Dosage: UNK
  2. VIBERZI [Suspect]
     Active Substance: ELUXADOLINE
     Dosage: 75 MG, BID
     Route: 065
  3. VIBERZI [Suspect]
     Active Substance: ELUXADOLINE
     Indication: IRRITABLE BOWEL SYNDROME
     Dosage: 75 MG, QD
     Route: 065

REACTIONS (3)
  - Contraindicated product administered [Unknown]
  - Inappropriate schedule of product administration [Unknown]
  - Rash [Recovering/Resolving]

NARRATIVE: CASE EVENT DATE: 2020
